FAERS Safety Report 13470668 (Version 11)
Quarter: 2017Q4

REPORT INFORMATION
  Report Type: Report from Study
  Country: CA (occurrence: CA)
  Receive Date: 20170424
  Receipt Date: 20171107
  Transmission Date: 20180320
  Serious: Yes (Hospitalization, Other)
  Sender: FDA-Public Use
  Company Number: CA-TAKEDA-2017TUS008114

PATIENT
  Age: 55 Year
  Sex: Female

DRUGS (8)
  1. CLONAZEPAM. [Concomitant]
     Active Substance: CLONAZEPAM
     Dosage: UNK
  2. VEDOLIZUMAB [Suspect]
     Active Substance: VEDOLIZUMAB
     Indication: CROHN^S DISEASE
     Dosage: 300 MG, UNK
     Route: 042
     Dates: start: 20160706, end: 20160819
  3. VEDOLIZUMAB [Suspect]
     Active Substance: VEDOLIZUMAB
     Dosage: 300 MG, UNK
     Route: 042
     Dates: start: 20170308, end: 20170929
  4. DILAUDID [Concomitant]
     Active Substance: HYDROMORPHONE HYDROCHLORIDE
     Dosage: UNK
  5. LOSEC [Concomitant]
     Active Substance: OMEPRAZOLE
     Indication: ULCER
     Dosage: UNK
  6. VITAMIN B12 [Suspect]
     Active Substance: CYANOCOBALAMIN
     Indication: PRODUCT USED FOR UNKNOWN INDICATION
     Dosage: UNK
     Route: 065
     Dates: start: 2017
  7. BISOPROLOL [Concomitant]
     Active Substance: BISOPROLOL
     Dosage: UNK
  8. IMURAN [Concomitant]
     Active Substance: AZATHIOPRINE
     Dosage: UNK
     Dates: start: 20160602

REACTIONS (18)
  - Abdominal wall wound [Unknown]
  - Vitamin B12 deficiency [Not Recovered/Not Resolved]
  - Malaise [Not Recovered/Not Resolved]
  - Drug dose omission [Unknown]
  - Anaemia [Unknown]
  - Crohn^s disease [Not Recovered/Not Resolved]
  - Ulcer [Recovered/Resolved]
  - Tremor [Not Recovered/Not Resolved]
  - Protein deficiency [Not Recovered/Not Resolved]
  - Blood test abnormal [Unknown]
  - Weight decreased [Unknown]
  - Blood albumin decreased [Not Recovered/Not Resolved]
  - Asthenia [Unknown]
  - Intestinal obstruction [Not Recovered/Not Resolved]
  - Hospitalisation [Not Recovered/Not Resolved]
  - Vomiting [Not Recovered/Not Resolved]
  - Peripheral swelling [Unknown]
  - Oedema [Unknown]

NARRATIVE: CASE EVENT DATE: 2017
